FAERS Safety Report 8565045-9 (Version None)
Quarter: 2012Q3

REPORT INFORMATION
  Report Type: 
  Country: None (occurrence: None)
  Receive Date: 20120723
  Receipt Date: 20120706
  Transmission Date: 20120928
  Serious: Yes (Other)
  Sender: FDA-Public Use
  Company Number: GGEL20120700869

PATIENT
  Age: 25 Year
  Sex: Male

DRUGS (1)
  1. LAMOTRIGINE [Suspect]
     Indication: GRAND MAL CONVULSION
     Dosage: 1 IN 1 D

REACTIONS (5)
  - DIZZINESS [None]
  - NAUSEA [None]
  - OCULOGYRIC CRISIS [None]
  - TOXICITY TO VARIOUS AGENTS [None]
  - INCORRECT DOSE ADMINISTERED [None]
